FAERS Safety Report 6022829-9 (Version None)
Quarter: 2008Q4

REPORT INFORMATION
  Report Type: 
  Country: None (occurrence: None)
  Receive Date: 20081230
  Receipt Date: 20080211
  Transmission Date: 20090506
  Serious: No
  Sender: FDA-Public Use
  Company Number: US-ABBOTT-08P-163-0432217-00

PATIENT
  Sex: Male

DRUGS (1)
  1. OMNICEF [Suspect]
     Indication: EAR INFECTION
     Route: 048
     Dates: start: 20061101, end: 20061103

REACTIONS (2)
  - ABDOMINAL PAIN [None]
  - DIARRHOEA HAEMORRHAGIC [None]
